FAERS Safety Report 24555120 (Version 4)
Quarter: 2025Q2

REPORT INFORMATION
  Report Type: Spontaneous
  Country: FR (occurrence: FR)
  Receive Date: 20241028
  Receipt Date: 20250624
  Transmission Date: 20250716
  Serious: Yes (Death, Hospitalization, Other)
  Sender: BAYER HEALTHCARE PHARMACEUTICALS INC.
  Company Number: FR-BAYER-2024A149652

PATIENT
  Age: 77 Year
  Sex: Male

DRUGS (4)
  1. ADEMPAS [Suspect]
     Active Substance: RIOCIGUAT
     Dates: start: 202305
  2. ADEMPAS [Suspect]
     Active Substance: RIOCIGUAT
     Dates: start: 202306
  3. FUROSEMIDE [Suspect]
     Active Substance: FUROSEMIDE
  4. MORPHINE [Concomitant]
     Active Substance: MORPHINE

REACTIONS (22)
  - Cerebral haemorrhage [Fatal]
  - Ascites [None]
  - Disorientation [None]
  - Lung neoplasm malignant [None]
  - Metastases to central nervous system [None]
  - Confusional state [None]
  - Gastrostomy [None]
  - Condition aggravated [None]
  - Pollakiuria [None]
  - Dehydration [None]
  - Contusion [None]
  - Hepatic function abnormal [None]
  - Asthenia [None]
  - Weight decreased [None]
  - Chest pain [None]
  - Joint swelling [None]
  - Peripheral swelling [None]
  - Epistaxis [None]
  - Drug ineffective [None]
  - Ecchymosis [None]
  - Chronic obstructive pulmonary disease [None]
  - Abdominal distension [None]

NARRATIVE: CASE EVENT DATE: 20230801
